FAERS Safety Report 13716939 (Version 1)
Quarter: 2017Q3

REPORT INFORMATION
  Report Type: Report from Study
  Country: US (occurrence: US)
  Receive Date: 20170705
  Receipt Date: 20170705
  Transmission Date: 20171127
  Serious: Yes (Hospitalization)
  Sender: FDA-Public Use
  Company Number: US-PFIZER INC-2017285738

PATIENT
  Age: 68 Year
  Sex: Male

DRUGS (3)
  1. ECOTRIN [Suspect]
     Active Substance: ASPIRIN
     Dosage: UNK
  2. TIKOSYN [Suspect]
     Active Substance: DOFETILIDE
     Dosage: UNK
  3. LENVIMA [Suspect]
     Active Substance: LENVATINIB
     Indication: THYROID CANCER
     Dosage: 4 MG, 1X/DAY
     Route: 048
     Dates: start: 20170419

REACTIONS (2)
  - Accidental overdose [Recovering/Resolving]
  - Feeling abnormal [Unknown]

NARRATIVE: CASE EVENT DATE: 201705
